FAERS Safety Report 8245509-8 (Version None)
Quarter: 2012Q1

REPORT INFORMATION
  Report Type: 
  Country: None (occurrence: None)
  Receive Date: 20120329
  Receipt Date: 20120322
  Transmission Date: 20120608
  Serious: Yes (Other)
  Sender: FDA-Public Use
  Company Number: BR-ASTRAZENECA-2012SE19490

PATIENT
  Age: 68 Year
  Sex: Female
  Weight: 55 kg

DRUGS (2)
  1. UNKNOWN [Concomitant]
     Indication: OSTEOPOROSIS
     Dosage: WEEKLY
     Route: 048
     Dates: start: 20050101
  2. CRESTOR [Suspect]
     Indication: CORONARY ARTERY OCCLUSION
     Route: 048
     Dates: start: 20110101

REACTIONS (2)
  - GASTRITIS [None]
  - CATARACT [None]
